FAERS Safety Report 13133038 (Version 1)
Quarter: 2017Q1

REPORT INFORMATION
  Report Type: Spontaneous
  Country: US (occurrence: US)
  Receive Date: 20170118
  Receipt Date: 20170118
  Transmission Date: 20170428
  Serious: No
  Sender: FDA-Public Use
  Company Number: None

PATIENT
  Age: 71 Year
  Sex: Female

DRUGS (1)
  1. CAPECITABINE 500MG ACCORD [Suspect]
     Active Substance: CAPECITABINE
     Dosage: 1000MG BID X 14 DAYS ON, 7 DAYS ORALLY
     Route: 048
     Dates: start: 20161202, end: 20170101

REACTIONS (4)
  - White blood cell count decreased [None]
  - Drug intolerance [None]
  - Nausea [None]
  - Vomiting [None]

NARRATIVE: CASE EVENT DATE: 20170101
